FAERS Safety Report 7240566-X (Version None)
Quarter: 2011Q1

REPORT INFORMATION
  Report Type: 
  Country: None (occurrence: None)
  Receive Date: 20110120
  Receipt Date: 20110120
  Transmission Date: 20110831
  Serious: Yes (Life-Threatening, Hospitalization, Disabling, Other)
  Sender: FDA-Public Use
  Company Number: None

PATIENT
  Age: 65 Year
  Sex: Female
  Weight: 71.2147 kg

DRUGS (2)
  1. VICTOZA [Suspect]
     Indication: WEIGHT CONTROL
     Dosage: .6/1.2/1.8 ONCE DAY INJ.
     Dates: start: 20100708
  2. VICTOZA [Suspect]
     Indication: DIABETES MELLITUS
     Dosage: .6/1.2/1.8 ONCE DAY INJ.
     Dates: start: 20100708

REACTIONS (3)
  - LUNG CARCINOMA CELL TYPE UNSPECIFIED STAGE IV [None]
  - LYMPHADENOPATHY [None]
  - LIVER DISORDER [None]
